FAERS Safety Report 24871334 (Version 4)
Quarter: 2025Q1

REPORT INFORMATION
  Report Type: Report from Study
  Country: US (occurrence: US)
  Receive Date: 20250122
  Receipt Date: 20250312
  Transmission Date: 20250409
  Serious: Yes (Hospitalization, Other)
  Sender: JAZZ
  Company Number: US-JAZZ PHARMACEUTICALS-2024-US-024582

PATIENT
  Age: 0 Year
  Sex: Female

DRUGS (8)
  1. EPIDIOLEX [Suspect]
     Active Substance: CANNABIDIOL
     Indication: Epilepsy
     Dosage: 0.2 MILLIGRAM, BID
     Dates: start: 20241219
  2. EPIDIOLEX [Suspect]
     Active Substance: CANNABIDIOL
     Indication: Status epilepticus
     Dosage: 0.8 MILLILITER, BID
     Route: 048
  3. EPIDIOLEX [Suspect]
     Active Substance: CANNABIDIOL
     Indication: Lennox-Gastaut syndrome
     Dosage: 0.7 MILLILITER, BID (FEEDING TUBE)
     Dates: start: 20241219
  4. EPIDIOLEX [Suspect]
     Active Substance: CANNABIDIOL
     Dosage: 0.9 UNK, BID (FEEDING TUBE)
     Dates: start: 20241219
  5. EPIDIOLEX [Suspect]
     Active Substance: CANNABIDIOL
     Dosage: 0.6 MILLILITER, BID
     Route: 048
     Dates: start: 202501
  6. EPIDIOLEX [Suspect]
     Active Substance: CANNABIDIOL
     Dosage: 0.9 MILLILITER, BID
     Route: 048
     Dates: start: 20241219
  7. VALPROIC ACID [Suspect]
     Active Substance: VALPROIC ACID
     Indication: Product used for unknown indication
  8. ONFI [Concomitant]
     Active Substance: CLOBAZAM
     Indication: Product used for unknown indication

REACTIONS (16)
  - Status epilepticus [Not Recovered/Not Resolved]
  - Seizure [Not Recovered/Not Resolved]
  - Hospitalisation [Unknown]
  - Insomnia [Not Recovered/Not Resolved]
  - Sleep terror [Not Recovered/Not Resolved]
  - Platelet count decreased [Unknown]
  - Seizure cluster [Not Recovered/Not Resolved]
  - Aspartate aminotransferase increased [Unknown]
  - Somnolence [Not Recovered/Not Resolved]
  - Fatigue [Not Recovered/Not Resolved]
  - Atonic seizures [Not Recovered/Not Resolved]
  - Infection [Not Recovered/Not Resolved]
  - Toxicity to various agents [Not Recovered/Not Resolved]
  - Nightmare [Unknown]
  - Therapeutic response unexpected [Not Recovered/Not Resolved]
  - Off label use [Unknown]

NARRATIVE: CASE EVENT DATE: 20250101
